FAERS Safety Report 10055849 (Version 1)
Quarter: 2014Q2

REPORT INFORMATION
  Report Type: Spontaneous
  Country: US (occurrence: US)
  Receive Date: 20140403
  Receipt Date: 20140403
  Transmission Date: 20141212
  Serious: Yes (Hospitalization)
  Sender: FDA-Public Use
  Company Number: US-BAYER-2014-049159

PATIENT
  Age: 44 Year
  Sex: Female

DRUGS (5)
  1. YAZ [Suspect]
  2. YASMIN [Suspect]
  3. FLONASE [Concomitant]
  4. BENADRYL [Concomitant]
     Route: 048
  5. MIDRIN [Concomitant]
     Route: 048

REACTIONS (2)
  - Superior sagittal sinus thrombosis [None]
  - Cerebrovascular accident [None]
